FAERS Safety Report 21764595 (Version 1)
Quarter: 2022Q4

REPORT INFORMATION
  Report Type: Spontaneous
  Country: US (occurrence: US)
  Receive Date: 20221222
  Receipt Date: 20221222
  Transmission Date: 20230113
  Serious: Yes (Other)
  Sender: FDA-Public Use
  Company Number: US-LA JOLLA PHARMACEUTICAL COMPANY-0000424

PATIENT

DRUGS (2)
  1. GIAPREZA [Suspect]
     Active Substance: ANGIOTENSIN II
     Indication: Shock
     Dosage: UNK
  2. NOREPINEPHRINE [Concomitant]
     Active Substance: NOREPINEPHRINE
     Indication: Product used for unknown indication

REACTIONS (1)
  - Intestinal ischaemia [Unknown]
